FAERS Safety Report 9044304 (Version 2)
Quarter: 2013Q1

REPORT INFORMATION
  Report Type: Spontaneous
  Country: US (occurrence: US)
  Receive Date: 20130131
  Receipt Date: 20130215
  Transmission Date: 20140127
  Serious: Yes (Hospitalization, Other)
  Sender: FDA-Public Use
  Company Number: US-BIOGENIDEC-2013BI009051

PATIENT
  Age: 43 Year
  Sex: Male

DRUGS (12)
  1. AVONEX [Suspect]
     Indication: MULTIPLE SCLEROSIS
     Route: 030
     Dates: start: 19970801
  2. AVONEX [Suspect]
     Indication: MULTIPLE SCLEROSIS
     Route: 030
  3. WELLBUTRIN [Concomitant]
     Indication: DEPRESSION
  4. LAMOTRIGINE [Concomitant]
     Indication: DEPRESSION
  5. NUVIGIL [Concomitant]
     Indication: DEPRESSION
  6. XANAX [Concomitant]
     Indication: DEPRESSION
  7. XANAX [Concomitant]
     Indication: ANXIETY
  8. PROZAC (FLUOXETINE) [Concomitant]
     Indication: DEPRESSION
  9. PROZAC (FLUOXETINE) [Concomitant]
     Indication: ANXIETY
  10. PROPANOL [Concomitant]
     Indication: MIGRAINE
  11. MAXALT [Concomitant]
     Indication: MIGRAINE
  12. SUMATRIPTAN [Concomitant]
     Indication: MIGRAINE

REACTIONS (5)
  - Accidental overdose [Recovered/Resolved]
  - Burnout syndrome [Recovered/Resolved]
  - Prostate cancer stage IV [Recovered/Resolved]
  - Memory impairment [Not Recovered/Not Resolved]
  - Fatigue [Not Recovered/Not Resolved]
